FAERS Safety Report 9356379 (Version 1)
Quarter: 2013Q2

REPORT INFORMATION
  Report Type: Spontaneous
  Country: FR (occurrence: FR)
  Receive Date: 20130619
  Receipt Date: 20130619
  Transmission Date: 20140414
  Serious: Yes (Hospitalization)
  Sender: FDA-Public Use
  Company Number: FR-TEVA-412221ISR

PATIENT
  Age: 58 Year
  Sex: Male

DRUGS (3)
  1. FLUOROURACIL [Suspect]
     Indication: ADENOCARCINOMA GASTRIC
     Dosage: 3400 MILLIGRAM DAILY;
     Route: 065
  2. EPIRUBICIN [Concomitant]
     Indication: ADENOCARCINOMA GASTRIC
     Route: 065
  3. CYCLOPHOSPHAMIDE [Concomitant]
     Indication: ADENOCARCINOMA GASTRIC
     Route: 065

REACTIONS (4)
  - Mucosal inflammation [Recovered/Resolved]
  - Neutropenia [Recovered/Resolved]
  - Overdose [Recovered/Resolved]
  - Incorrect drug administration duration [Recovered/Resolved]
